FAERS Safety Report 9522992 (Version 1)
Quarter: 2013Q1

REPORT INFORMATION
  Report Type: Spontaneous
  Country: US (occurrence: None)
  Receive Date: 20130305
  Receipt Date: 20130305
  Transmission Date: 20140127
  Serious: Yes (Other)
  Sender: FDA-Public Use
  Company Number: 163-21880-12070293

PATIENT
  Age: 53 Year
  Sex: Female

DRUGS (12)
  1. REVLIMID [Suspect]
     Indication: PLASMA CELL MYELOMA
     Dosage: 10 MG, 1 IN 1 D, PO
     Route: 048
     Dates: start: 20110504
  2. XANAX (ALPRAZOLAM)  (UNNOWN) [Concomitant]
  3. AMBIEN (ZOLPIEM TARTRATE) (UNKNOWN) [Concomitant]
  4. LORAZEPAM (LORAZEPAM) (UNKNOWN) [Concomitant]
  5. VALTREX (VALACICLOVIR HYDROCHLORIDE) (UNKNOWN) [Concomitant]
  6. HYDROXYZINE (HYDROXYZINE) (UNKNOWN) [Concomitant]
  7. ELAVIL (AMITRIPTYLINE HYDROCHLORIDE) (UNKNOWN) [Concomitant]
  8. PERCOCET (OXYCOCET) (UNKNOWN) [Concomitant]
  9. MUCINEX (GUAIFENESIN) (UNKNOWN) [Concomitant]
  10. ZYRTEC (CETIRIZINE HYDROCHLORIDE) (UNKNOWN) [Concomitant]
  11. RAINTIDINE (RAINTIDINE) (UNKNOWN) [Concomitant]
  12. COMPLEX (BECOSYM FORTE) (UNKNOWN) [Concomitant]

REACTIONS (1)
  - White blood cell count decreased [None]
